FAERS Safety Report 9553371 (Version 1)
Quarter: 2013Q3

REPORT INFORMATION
  Report Type: Spontaneous
  Country: US (occurrence: US)
  Receive Date: 20130925
  Receipt Date: 20130925
  Transmission Date: 20140515
  Serious: Yes (Hospitalization)
  Sender: FDA-Public Use
  Company Number: US-BRACCO-009930

PATIENT
  Age: 69 Year
  Sex: Female
  Weight: 58 kg

DRUGS (10)
  1. LASIX [Concomitant]
     Route: 048
  2. MIRALAX [Concomitant]
     Dosage: PRN
     Route: 048
  3. MULTIHANCE [Suspect]
     Indication: NUCLEAR MAGNETIC RESONANCE IMAGING
     Route: 042
     Dates: start: 20130918, end: 20130918
  4. WELLBUTRIN [Concomitant]
     Route: 048
  5. TERAZOSIN [Concomitant]
  6. AMBIEN [Concomitant]
     Route: 048
  7. XANAX [Concomitant]
     Dosage: AS NEEDED
     Route: 048
  8. METOPROLOL [Concomitant]
     Route: 048
  9. VICODIN [Concomitant]
     Dosage: VICODIN 750/7.5 AS NEEDED EVERY 6 HOURS
  10. ASA [Concomitant]
     Route: 048

REACTIONS (5)
  - Transient ischaemic attack [Recovered/Resolved]
  - VIIth nerve paralysis [Recovered/Resolved]
  - Dysphonia [Recovered/Resolved]
  - Convulsion [Recovered/Resolved]
  - Anaphylactic reaction [Recovered/Resolved]
